FAERS Safety Report 11838747 (Version 1)
Quarter: 2015Q4

REPORT INFORMATION
  Report Type: Report from Study
  Country: IE (occurrence: IE)
  Receive Date: 20151215
  Receipt Date: 20151215
  Transmission Date: 20160305
  Serious: Yes (Death, Other)
  Sender: FDA-Public Use
  Company Number: IE-AMGEN-IRLSL2015132550

PATIENT
  Age: 71 Year
  Sex: Male

DRUGS (9)
  1. ASPIRIN                            /00002701/ [Concomitant]
     Active Substance: ASPIRIN
     Dosage: 75 MG, ONCE DAILY
  2. MOTILIUM [Concomitant]
     Active Substance: DOMPERIDONE
     Dosage: 10 MG, PRN
  3. ONDANSETRON [Concomitant]
     Active Substance: ONDANSETRON
     Dosage: 4 MG, PRN
  4. IMODIUM [Concomitant]
     Active Substance: LOPERAMIDE HYDROCHLORIDE
     Dosage: 2 MG, ONCE DAILY
  5. ATENENOL [Concomitant]
     Dosage: 20 MG, ONCE DAILY
  6. ALLOPURINOL. [Concomitant]
     Active Substance: ALLOPURINOL
     Dosage: 150 MG, ONCE DAILY
  7. NEULASTA [Suspect]
     Active Substance: PEGFILGRASTIM
     Indication: OESOPHAGEAL CARCINOMA
     Dosage: 6 MG, AS PER CHEMO PRESCRIPTION
     Route: 058
     Dates: start: 20150619
  8. CODEINE PHOSPHATE [Concomitant]
     Active Substance: CODEINE PHOSPHATE
     Dosage: 5 MG, ONCE DAILY
  9. VALOID                             /00014902/ [Concomitant]
     Active Substance: CYCLIZINE HYDROCHLORIDE
     Dosage: 50 MG, PRN

REACTIONS (1)
  - Death [Fatal]

NARRATIVE: CASE EVENT DATE: 20151203
